FAERS Safety Report 9665811 (Version 1)
Quarter: 2013Q4

REPORT INFORMATION
  Report Type: Report from Study
  Country: BE (occurrence: BE)
  Receive Date: 20131104
  Receipt Date: 20131104
  Transmission Date: 20140711
  Serious: Yes (Death, Other)
  Sender: FDA-Public Use
  Company Number: BE-ASTELLAS-2013EU009519

PATIENT
  Sex: 0

DRUGS (7)
  1. TACROLIMUS SYSTEMIC [Suspect]
     Indication: RENAL TRANSPLANT
     Dosage: UNK
     Route: 065
  2. TACROLIMUS SYSTEMIC [Suspect]
     Indication: IMMUNOSUPPRESSION
  3. MYCOPHENOLATE MOFETIL [Suspect]
     Indication: RENAL TRANSPLANT
     Dosage: UNK
     Route: 065
  4. MYCOPHENOLATE MOFETIL [Suspect]
     Indication: IMMUNOSUPPRESSION
  5. PREDNISOLON /00016201/ [Suspect]
     Indication: RENAL TRANSPLANT
     Dosage: 50 MG, BID
     Route: 042
  6. PREDNISOLON /00016201/ [Suspect]
     Indication: IMMUNOSUPPRESSION
     Dosage: 20 MG, UID/QD
     Route: 048
  7. PREDNISOLON /00016201/ [Suspect]
     Dosage: 5 MG, UNKNOWN/D
     Route: 065

REACTIONS (2)
  - Lung neoplasm malignant [Fatal]
  - Diabetes mellitus [Unknown]
